FAERS Safety Report 6269280-4 (Version None)
Quarter: 2009Q3

REPORT INFORMATION
  Report Type: 
  Country: None (occurrence: None)
  Receive Date: 20090715
  Receipt Date: 20090705
  Transmission Date: 20100115
  Serious: Yes (Other)
  Sender: FDA-Public Use
  Company Number: PHHY2009GB28064

PATIENT
  Sex: Male

DRUGS (1)
  1. NEORAL [Suspect]

REACTIONS (3)
  - AGGRESSION [None]
  - ANGER [None]
  - PSYCHOTIC DISORDER [None]
